FAERS Safety Report 7244823-2 (Version None)
Quarter: 2011Q1

REPORT INFORMATION
  Report Type: 
  Country: None (occurrence: None)
  Receive Date: 20110126
  Receipt Date: 20110114
  Transmission Date: 20110831
  Serious: Yes (Life-Threatening, Hospitalization, Other)
  Sender: FDA-Public Use
  Company Number: FR-PFIZER INC-2011015039

PATIENT
  Age: 80 Year
  Sex: Female

DRUGS (9)
  1. PLAVIX [Concomitant]
  2. SPIRIVA [Concomitant]
  3. ASPIRIN [Concomitant]
  4. CORDARONE [Suspect]
     Dosage: 200 MG, UNK
     Dates: end: 20101101
  5. IVABRADINE [Interacting]
     Dosage: 5 MG, 2X/DAY
     Route: 048
     Dates: start: 20100901, end: 20101101
  6. IVABRADINE [Interacting]
     Dosage: 7.5 MG, 2X/DAY
     Route: 048
     Dates: start: 20101101, end: 20101207
  7. ESOMEPRAZOLE [Interacting]
     Dosage: UNK
     Route: 048
  8. CARDENSIEL [Interacting]
     Dosage: 2.5 MG, 1X/DAY
     Route: 048
     Dates: start: 20101101, end: 20101207
  9. BUDESONIDE/FORMOTEROL FUMARATE [Concomitant]

REACTIONS (9)
  - MITRAL VALVE INCOMPETENCE [None]
  - DRUG INTERACTION [None]
  - TORSADE DE POINTES [None]
  - SINUS BRADYCARDIA [None]
  - PULMONARY OEDEMA [None]
  - RENAL DISORDER [None]
  - DYSPNOEA [None]
  - CARDIAC FAILURE [None]
  - BRONCHOSPASM [None]
